FAERS Safety Report 17559479 (Version 1)
Quarter: 2020Q1

REPORT INFORMATION
  Report Type: Spontaneous
  Country: US (occurrence: US)
  Receive Date: 20200311
  Receipt Date: 20200311
  Transmission Date: 20200409
  Serious: Yes (Hospitalization)
  Sender: FDA-Public Use
  Company Number: None

PATIENT
  Age: 46 Year
  Sex: Female

DRUGS (1)
  1. HUMIRA [Suspect]
     Active Substance: ADALIMUMAB
     Indication: CHRONIC DISEASE
     Dosage: FREQUENCY: EVERY 14 DAYS
     Route: 058
     Dates: start: 20190917

REACTIONS (3)
  - Vomiting [None]
  - Weight decreased [None]
  - Abdominal discomfort [None]
